FAERS Safety Report 9594920 (Version 1)
Quarter: 2013Q4

REPORT INFORMATION
  Report Type: Spontaneous
  Country: GB (occurrence: GB)
  Receive Date: 20131004
  Receipt Date: 20131004
  Transmission Date: 20140711
  Serious: Yes (Life-Threatening)
  Sender: FDA-Public Use
  Company Number: GB-SA-2013SA095878

PATIENT
  Age: 29 Year
  Sex: Male

DRUGS (1)
  1. FEXOFENADINE HYDROCHLORIDE [Suspect]
     Indication: URTICARIA
     Route: 065
     Dates: start: 20130916

REACTIONS (1)
  - Lip swelling [Not Recovered/Not Resolved]
